FAERS Safety Report 18312808 (Version 1)
Quarter: 2020Q3

REPORT INFORMATION
  Report Type: Spontaneous
  Country: US (occurrence: US)
  Receive Date: 20200925
  Receipt Date: 20200925
  Transmission Date: 20201103
  Serious: Yes (Other)
  Sender: FDA-Public Use
  Company Number: US-BECTON DICKINSON-2020BDN00220

PATIENT

DRUGS (5)
  1. UNSPECIFIED GENERAL ANESTHESIA [Concomitant]
     Route: 065
  2. CHLORHEXIDINE GLUCONATE. [Suspect]
     Active Substance: CHLORHEXIDINE GLUCONATE
     Indication: ANTIBIOTIC PROPHYLAXIS
     Dosage: UNK, ONCE
     Route: 061
  3. ^POVIDONE IODONE ADDED SALINE^ [Concomitant]
     Dosage: 9 L, ONCE
     Route: 061
  4. ^BACITRACIN ADDED SODIUM CHLORIDE^ [Concomitant]
     Dosage: 9 L BACITRACIN ADDED 0.9% SODIUM CHLORIDE
     Route: 061
  5. CALCIUM SUPHATE?IMPREGNATED BEAD (VANCOMYCIN, TOBRAMYCIN, AND AN UNSPE [Concomitant]
     Dosage: 1 GR VANCOMYCIN, 0.8 GR TOBRAMYCIN
     Route: 065

REACTIONS (2)
  - Staphylococcal infection [Unknown]
  - Off label use [Recovered/Resolved]
